FAERS Safety Report 26146703 (Version 2)
Quarter: 2025Q4

REPORT INFORMATION
  Report Type: Spontaneous
  Country: EU (occurrence: EU)
  Receive Date: 20251211
  Receipt Date: 20251223
  Transmission Date: 20260118
  Serious: No
  Sender: PFIZER
  Company Number: None

PATIENT
  Age: 76 Year
  Sex: Female

DRUGS (4)
  1. ROCURONIUM [Suspect]
     Active Substance: ROCURONIUM BROMIDE
     Indication: Skin test
     Dosage: UNK UNK, SINGLE
     Route: 023
     Dates: start: 20250623
  2. ATRACURIUM BESYLATE [Suspect]
     Active Substance: ATRACURIUM BESYLATE
     Indication: Skin test
     Dosage: UNK UNK, SINGLE
     Route: 023
     Dates: start: 20250623
  3. SUCCINYLCHOLINE CHLORIDE [Suspect]
     Active Substance: SUCCINYLCHOLINE CHLORIDE
     Indication: Skin test
     Dosage: UNK UNK, SINGLE
     Route: 023
     Dates: start: 20250623
  4. CISATRACURIUM [Suspect]
     Active Substance: CISATRACURIUM
     Indication: Skin test
     Dosage: UNK UNK, SINGLE
     Route: 023
     Dates: start: 20250623

REACTIONS (1)
  - Drug hypersensitivity [Unknown]

NARRATIVE: CASE EVENT DATE: 20250623
